FAERS Safety Report 4910059-0 (Version None)
Quarter: 2006Q1

REPORT INFORMATION
  Report Type: 
  Country: None (occurrence: None)
  Receive Date: 20060213
  Receipt Date: 20060111
  Transmission Date: 20060701
  Serious: Yes (Hospitalization)
  Sender: FDA-Public Use
  Company Number: FR-ABBOTT-06P-056-0321728-00

PATIENT
  Age: 79 Year
  Sex: Female

DRUGS (7)
  1. LIPANTHYL [Suspect]
     Indication: HYPERCHOLESTEROLAEMIA
     Route: 048
     Dates: start: 20000601, end: 20051125
  2. TROXERUTIN [Concomitant]
     Indication: DRUG USE FOR UNKNOWN INDICATION
     Dates: end: 20051129
  3. ACETYLSALICYLATE LYSINE [Concomitant]
     Indication: DRUG USE FOR UNKNOWN INDICATION
  4. CANDESARTAN CILEXETIL [Concomitant]
     Indication: ESSENTIAL HYPERTENSION
     Dates: start: 20010601, end: 20041115
  5. GLICLAZIDE [Concomitant]
     Indication: DIABETES MELLITUS
     Dates: start: 20010601, end: 20041115
  6. ROSIGLITAZONE MALEATE [Concomitant]
     Indication: DRUG USE FOR UNKNOWN INDICATION
  7. PERINDOPRIL [Concomitant]
     Indication: DRUG USE FOR UNKNOWN INDICATION

REACTIONS (12)
  - C-REACTIVE PROTEIN INCREASED [None]
  - ECZEMA [None]
  - INFLAMMATION [None]
  - LICHENOID KERATOSIS [None]
  - LYMPHOEDEMA [None]
  - PITTING OEDEMA [None]
  - PRURITUS [None]
  - RASH VESICULAR [None]
  - SYSTEMIC INFLAMMATORY RESPONSE SYNDROME [None]
  - TOXIC SKIN ERUPTION [None]
  - VENOUS INSUFFICIENCY [None]
  - WOUND SECRETION [None]
